FAERS Safety Report 21657632 (Version 2)
Quarter: 2023Q2

REPORT INFORMATION
  Report Type: Report from Study
  Country: US (occurrence: US)
  Receive Date: 20221129
  Receipt Date: 20230427
  Transmission Date: 20230721
  Serious: Yes (Other)
  Sender: FDA-Public Use
  Company Number: US-PFIZER INC-PV202200110051

PATIENT

DRUGS (1)
  1. CARBOPLATIN [Suspect]
     Active Substance: CARBOPLATIN
     Indication: Retinoblastoma
     Dosage: 0.3 MG, EVERY 14-21 DAYS, 5 INJECTIONS
     Route: 057

REACTIONS (1)
  - Neutropenia [Unknown]
